FAERS Safety Report 20893050 (Version 1)
Quarter: 2022Q2

REPORT INFORMATION
  Report Type: Spontaneous
  Country: US (occurrence: US)
  Receive Date: 20220531
  Receipt Date: 20220531
  Transmission Date: 20220721
  Serious: Yes (Other)
  Sender: FDA-Public Use
  Company Number: US-BRISTOL-MYERS SQUIBB COMPANY-2022-045409

PATIENT
  Age: 76 Year
  Sex: Male

DRUGS (31)
  1. REVLIMID [Suspect]
     Active Substance: LENALIDOMIDE
     Indication: Plasma cell myeloma
     Route: 048
  2. ALBUTEROL SULFATE [Concomitant]
     Active Substance: ALBUTEROL SULFATE
  3. ACCUNEB [Concomitant]
     Active Substance: ALBUTEROL SULFATE
  4. ASPIRIN [Concomitant]
     Active Substance: ASPIRIN
  5. AZELASTINE [Concomitant]
     Active Substance: AZELASTINE
  6. CLONAZEPAM [Concomitant]
     Active Substance: CLONAZEPAM
  7. CYMBALTA [Concomitant]
     Active Substance: DULOXETINE HYDROCHLORIDE
  8. DUONEB [Concomitant]
     Active Substance: ALBUTEROL SULFATE\IPRATROPIUM BROMIDE
  9. FERROUS SULFATE [Concomitant]
     Active Substance: FERROUS SULFATE
  10. FINASTERIDE [Concomitant]
     Active Substance: FINASTERIDE
  11. FLONASE [Concomitant]
     Active Substance: FLUTICASONE PROPIONATE
  12. FUROSEMIDE [Concomitant]
     Active Substance: FUROSEMIDE
  13. GLUCERNA [Concomitant]
     Active Substance: AMINO ACIDS\DEXTROSE\ELECTROLYTES NOS\SOYBEAN OIL\VITAMINS
  14. HUMALOG [Concomitant]
     Active Substance: INSULIN LISPRO
  15. LISINOPRIL [Concomitant]
     Active Substance: LISINOPRIL
  16. LYRICA [Concomitant]
     Active Substance: PREGABALIN
  17. METOPROLOL [Concomitant]
     Active Substance: METOPROLOL
  18. MONTELUKAST [Concomitant]
     Active Substance: MONTELUKAST SODIUM
  19. NITROSTAT [Concomitant]
     Active Substance: NITROGLYCERIN
  20. OXYBUTYNIN [Concomitant]
     Active Substance: OXYBUTYNIN
  21. PANTOPRAZOLE [Concomitant]
     Active Substance: PANTOPRAZOLE
  22. POTASSIUM CHLORIDE [Concomitant]
     Active Substance: POTASSIUM CHLORIDE
  23. PRAVASTATIN [Concomitant]
     Active Substance: PRAVASTATIN
  24. SENNA LEAF [Concomitant]
     Active Substance: SENNA LEAF
  25. SPIRIVA [Concomitant]
     Active Substance: TIOTROPIUM BROMIDE MONOHYDRATE
  26. TAMSULOSIN HYDROCHLORIDE [Concomitant]
     Active Substance: TAMSULOSIN HYDROCHLORIDE
  27. TIZANIDINE [Concomitant]
     Active Substance: TIZANIDINE
  28. TOPIRAMATE [Concomitant]
     Active Substance: TOPIRAMATE
  29. TORSEMIDE [Concomitant]
     Active Substance: TORSEMIDE
  30. TRAMADOL HYDROCHLORIDE [Concomitant]
     Active Substance: TRAMADOL HYDROCHLORIDE
  31. ZYRTEC [Concomitant]
     Active Substance: CETIRIZINE HYDROCHLORIDE

REACTIONS (1)
  - Platelet count decreased [Unknown]

NARRATIVE: CASE EVENT DATE: 20220511
